FAERS Safety Report 6756709-8 (Version None)
Quarter: 2010Q2

REPORT INFORMATION
  Report Type: 
  Country: None (occurrence: None)
  Receive Date: 20100604
  Receipt Date: 20100521
  Transmission Date: 20101027
  Serious: Yes (Hospitalization, Other)
  Sender: FDA-Public Use
  Company Number: US-ELI_LILLY_AND_COMPANY-US201004002875

PATIENT
  Sex: Male

DRUGS (6)
  1. EFFIENT [Suspect]
     Indication: PERCUTANEOUS CORONARY INTERVENTION
     Dosage: 60 MG, UNK
     Dates: end: 20100331
  2. INTEGRILIN [Concomitant]
  3. HEPARIN [Concomitant]
  4. ASPIRIN [Concomitant]
  5. CELLCEPT [Concomitant]
     Dosage: 500 UNK, 2/D
  6. PROGRAF [Concomitant]

REACTIONS (3)
  - CARDIAC TAMPONADE [None]
  - HAEMORRHAGE [None]
  - PERICARDIAL EFFUSION [None]
